FAERS Safety Report 6946995-3 (Version None)
Quarter: 2010Q3

REPORT INFORMATION
  Report Type: 
  Country: None (occurrence: None)
  Receive Date: 20100827
  Receipt Date: 20090824
  Transmission Date: 20110219
  Serious: No
  Sender: FDA-Public Use
  Company Number: US-ABBOTT-09P-163-0593139-00

PATIENT
  Sex: Male
  Weight: 94.432 kg

DRUGS (8)
  1. NIASPAN [Suspect]
     Indication: HIGH DENSITY LIPOPROTEIN DECREASED
     Dates: start: 20090101
  2. NIASPAN [Suspect]
     Indication: BLOOD CHOLESTEROL ABNORMAL
  3. ASPIRIN [Concomitant]
     Route: 048
  4. CRESTOR [Concomitant]
     Route: 048
  5. FOLIC ACID [Concomitant]
     Route: 048
  6. BENICAR [Concomitant]
     Route: 048
  7. FENTANYL CITRATE [Concomitant]
     Dosage: PATCH
  8. OXYCODONE [Concomitant]
     Dosage: 10/325 MG
     Route: 048

REACTIONS (1)
  - FLUSHING [None]
